FAERS Safety Report 8259231-5 (Version None)
Quarter: 2012Q2

REPORT INFORMATION
  Report Type: 
  Country: None (occurrence: None)
  Receive Date: 20120404
  Receipt Date: 20120330
  Transmission Date: 20120825
  Serious: Yes (Hospitalization, Other)
  Sender: FDA-Public Use
  Company Number: JP-JNJFOC-20111201572

PATIENT
  Sex: Male

DRUGS (9)
  1. TRAMADOL HYDROCHLORIDE AND ACETAMINOPHEN [Suspect]
     Route: 048
     Dates: start: 20111127
  2. RABEPRAZOLE SODIUM [Concomitant]
     Dosage: 1 PER 1 DAY
     Route: 048
  3. SELTOUCH [Concomitant]
     Indication: PAIN
     Route: 065
     Dates: start: 20050407, end: 20110921
  4. MOTILIUM [Concomitant]
     Indication: PAIN
     Route: 065
     Dates: start: 20110810, end: 20110921
  5. TRAMADOL HYDROCHLORIDE AND ACETAMINOPHEN [Suspect]
     Dosage: 2 DOSES ONE PER DAY
     Route: 048
     Dates: start: 20110910, end: 20111129
  6. TRAMADOL HYDROCHLORIDE AND ACETAMINOPHEN [Suspect]
     Route: 048
     Dates: start: 20111123, end: 20111126
  7. MUCOSTA [Concomitant]
     Route: 048
  8. LOXONIN [Concomitant]
     Indication: PAIN
     Route: 065
     Dates: start: 20111005, end: 20120131
  9. TRAMADOL HYDROCHLORIDE AND ACETAMINOPHEN [Suspect]
     Indication: PAIN
     Dosage: ONE DOSE ONE PER DAY
     Route: 048
     Dates: start: 20110810, end: 20110910

REACTIONS (6)
  - NAUSEA [None]
  - MALLORY-WEISS SYNDROME [None]
  - VOCAL CORD POLYP [None]
  - DIZZINESS [None]
  - CONSTIPATION [None]
  - COLONIC POLYP [None]
